FAERS Safety Report 17680826 (Version 6)
Quarter: 2020Q2

REPORT INFORMATION
  Report Type: Report from Study
  Country: BR (occurrence: BR)
  Receive Date: 20200417
  Receipt Date: 20200629
  Transmission Date: 20200714
  Serious: Yes (Hospitalization)
  Sender: FDA-Public Use
  Company Number: BR-EISAI MEDICAL RESEARCH-EC-2020-073419

PATIENT
  Age: 47 Year
  Sex: Female
  Weight: 86.1 kg

DRUGS (13)
  1. MUVINLAX SACHES [Concomitant]
     Dates: start: 20200116
  2. LENVATINIB [Suspect]
     Active Substance: LENVATINIB
     Indication: ENDOMETRIAL CANCER
     Dosage: FLUCTUATED DOSES
     Route: 048
     Dates: start: 20191022, end: 20200319
  3. PEMBROLIZUMAB. [Suspect]
     Active Substance: PEMBROLIZUMAB
     Route: 048
     Dates: start: 20200327, end: 20200327
  4. LEVOTHYROXINE SODIUM. [Concomitant]
     Active Substance: LEVOTHYROXINE SODIUM
     Dates: start: 20200122
  5. LACTULOSE. [Concomitant]
     Active Substance: LACTULOSE
     Dates: start: 20190823
  6. DOMPERIDONE [Concomitant]
     Active Substance: DOMPERIDONE
     Dates: start: 20200122
  7. METAMUCIL [Concomitant]
     Active Substance: PLANTAGO SEED
     Dates: start: 20200116
  8. DESVENLAFAXINE. [Concomitant]
     Active Substance: DESVENLAFAXINE
     Dates: start: 20200116
  9. PEMBROLIZUMAB. [Suspect]
     Active Substance: PEMBROLIZUMAB
     Indication: ENDOMETRIAL CANCER
     Route: 048
     Dates: start: 20191022, end: 20200227
  10. DIPYRONE [Concomitant]
     Active Substance: DIPYRONE
     Dates: start: 201906
  11. MORPHINE [Concomitant]
     Active Substance: MORPHINE
     Dates: start: 20190823
  12. LENVATINIB [Suspect]
     Active Substance: LENVATINIB
     Route: 048
     Dates: start: 20200327, end: 20200408
  13. MAGNESIUM [Concomitant]
     Active Substance: MAGNESIUM
     Dates: start: 20200122

REACTIONS (1)
  - Vomiting [Recovered/Resolved]

NARRATIVE: CASE EVENT DATE: 20200404
